FAERS Safety Report 13681911 (Version 1)
Quarter: 2017Q2

REPORT INFORMATION
  Report Type: Spontaneous
  Country: DE (occurrence: DE)
  Receive Date: 20170623
  Receipt Date: 20170623
  Transmission Date: 20170830
  Serious: Yes (Congenital Anomaly)
  Sender: FDA-Public Use
  Company Number: DE-009507513-1706DEU006437

PATIENT
  Age: 1 Day
  Sex: Female
  Weight: 1 kg

DRUGS (10)
  1. PREDNISOLONE. [Concomitant]
     Active Substance: PREDNISOLONE
     Indication: ANTI-NEUTROPHIL CYTOPLASMIC ANTIBODY POSITIVE VASCULITIS
     Dosage: DOSAGE INCREASE FROM 4 TO 12 MG/D
     Route: 064
     Dates: start: 20160701, end: 20170104
  2. VIGANTOLETTEN [Concomitant]
     Active Substance: CHOLECALCIFEROL
     Indication: VITAMIN D DEFICIENCY
     Dosage: 1000 IU, QD
     Route: 064
     Dates: start: 20160701, end: 20170104
  3. ASS 100 [Concomitant]
     Active Substance: ASPIRIN
     Indication: PRODUCT USED FOR UNKNOWN INDICATION
     Dosage: 100 MG, QD
     Route: 064
     Dates: start: 20161229, end: 20170104
  4. CYANOCOBALAMIN. [Concomitant]
     Active Substance: CYANOCOBALAMIN
     Indication: VITAMIN B12 DEFICIENCY
     Dosage: UNK
     Route: 064
     Dates: start: 20160701, end: 20161128
  5. CELESTAN [Concomitant]
     Active Substance: BETAMETHASONE
     Indication: MATERNAL THERAPY TO ENHANCE FOETAL LUNG MATURITY
     Dosage: UNK
     Route: 064
     Dates: start: 20161229, end: 20161230
  6. AZATHIOPRINE. [Suspect]
     Active Substance: AZATHIOPRINE
     Indication: ANTI-NEUTROPHIL CYTOPLASMIC ANTIBODY POSITIVE VASCULITIS
     Dosage: 150 MG, QD
     Route: 064
     Dates: start: 20160701, end: 20170104
  7. LOSARTAN POTASSIUM. [Suspect]
     Active Substance: LOSARTAN POTASSIUM
     Indication: RENAL HYPERTENSION
     Dosage: 25 MG, QD
     Route: 064
     Dates: end: 20161123
  8. CARVEDILOL. [Suspect]
     Active Substance: CARVEDILOL
     Indication: RENAL HYPERTENSION
     Dosage: 50 [MG/D ]/REDUCED TO 25 MG/D IN WEEK 26 5/7
     Route: 064
     Dates: start: 20160701, end: 20170104
  9. TORSEMIDE. [Suspect]
     Active Substance: TORSEMIDE
     Indication: OEDEMA
     Dosage: 5 MG, QD
     Route: 064
     Dates: start: 20160701, end: 20161128
  10. PANTOPRAZOLE [Concomitant]
     Active Substance: PANTOPRAZOLE
     Indication: PROPHYLAXIS AGAINST GASTROINTESTINAL ULCER
     Dosage: 20 MG, QD
     Route: 064
     Dates: start: 20160701, end: 20170104

REACTIONS (3)
  - Ventricular septal defect [Not Recovered/Not Resolved]
  - Atrial septal defect [Unknown]
  - Right aortic arch [Not Recovered/Not Resolved]

NARRATIVE: CASE EVENT DATE: 20170131
